FAERS Safety Report 8575267-9 (Version None)
Quarter: 2012Q3

REPORT INFORMATION
  Report Type: 
  Country: None (occurrence: None)
  Receive Date: 20120807
  Receipt Date: 20120727
  Transmission Date: 20120928
  Serious: Yes (Death)
  Sender: FDA-Public Use
  Company Number: FR-PFIZER INC-2012179505

PATIENT
  Age: 92 Year
  Sex: Male

DRUGS (10)
  1. ACETAMINOPHEN [Concomitant]
     Indication: PAIN
     Route: 048
  2. BETAMETHASONE [Concomitant]
     Dosage: UNK
     Route: 003
     Dates: end: 20120313
  3. NEXIUM [Concomitant]
  4. CEFTRIAXONE [Concomitant]
     Indication: INFECTION
     Dosage: UNK
     Route: 048
     Dates: start: 20120214, end: 20120224
  5. FLUCONAZOLE [Concomitant]
     Dosage: UNK
     Route: 003
     Dates: end: 20120305
  6. DIGOXIN [Concomitant]
     Dosage: 0.125 MG, UNK
     Route: 048
  7. TAZOBACTAM [Concomitant]
     Dosage: UNK
     Dates: start: 20120227, end: 20120312
  8. NOXAFIL [Concomitant]
     Indication: FUNGAL INFECTION
     Dosage: 40 MG/ML
     Route: 048
     Dates: start: 20120227
  9. ZYVOX [Suspect]
     Dosage: UNK
     Route: 048
     Dates: start: 20120227, end: 20120312
  10. FUROSEMIDE [Concomitant]

REACTIONS (2)
  - THROMBOCYTOPENIA [None]
  - ANAEMIA [None]
